FAERS Safety Report 8039046-3 (Version None)
Quarter: 2012Q1

REPORT INFORMATION
  Report Type: 
  Country: None (occurrence: None)
  Receive Date: 20120111
  Receipt Date: 20111210
  Transmission Date: 20120608
  Serious: No
  Sender: FDA-Public Use
  Company Number: US-AMGEN-USASP2011060992

PATIENT
  Age: 28 Year
  Sex: Female

DRUGS (1)
  1. ENBREL [Suspect]
     Indication: RHEUMATOID ARTHRITIS
     Dosage: 50 MG, QWK
     Dates: start: 20100513, end: 20111201

REACTIONS (10)
  - OROPHARYNGEAL PAIN [None]
  - RESPIRATORY TRACT CONGESTION [None]
  - FATIGUE [None]
  - MYALGIA [None]
  - DYSPNOEA [None]
  - CYSTITIS [None]
  - MALAISE [None]
  - ARTHRALGIA [None]
  - JOINT STIFFNESS [None]
  - VULVOVAGINAL MYCOTIC INFECTION [None]
